FAERS Safety Report 18944585 (Version 1)
Quarter: 2021Q1

REPORT INFORMATION
  Report Type: Spontaneous
  Country: DE (occurrence: DE)
  Receive Date: 20210226
  Receipt Date: 20210226
  Transmission Date: 20210420
  Serious: Yes (Death, Other)
  Sender: FDA-Public Use
  Company Number: DE-PFIZER INC-04H-062-0267265-00

PATIENT
  Age: 55 Year
  Sex: Male

DRUGS (2)
  1. HEPARIN SODIUM. [Suspect]
     Active Substance: HEPARIN SODIUM
     Indication: SPINAL FRACTURE
     Dosage: UNK
  2. DANAPAROID [Suspect]
     Active Substance: DANAPAROID
     Indication: PRODUCT USED FOR UNKNOWN INDICATION
     Dosage: UNK

REACTIONS (6)
  - Deep vein thrombosis [Unknown]
  - Haemorrhagic infarction [Unknown]
  - Heparin-induced thrombocytopenia [Unknown]
  - Cerebral infarction [Unknown]
  - Myocardial infarction [Unknown]
  - Pulmonary embolism [Fatal]
